FAERS Safety Report 5786691-1 (Version None)
Quarter: 2008Q2

REPORT INFORMATION
  Report Type: 
  Country: None (occurrence: None)
  Receive Date: 20080618
  Receipt Date: 20080611
  Transmission Date: 20081010
  Serious: Yes (Death)
  Sender: FDA-Public Use
  Company Number: S08-FRA-01520-01

PATIENT
  Age: 87 Year
  Sex: Male
  Weight: 55 kg

DRUGS (11)
  1. MEMANTINE HCL [Suspect]
     Indication: DEMENTIA
     Dosage: 20 MG QD PO
     Route: 048
     Dates: start: 20080323, end: 20080324
  2. MEMANTINE HCL [Suspect]
     Indication: DEMENTIA
     Dosage: 5 MG QD PO
     Route: 048
     Dates: start: 20080305, end: 20080308
  3. STABLON (TIANEPTINE) [Concomitant]
  4. EQUANIL [Concomitant]
  5. MEMANTINE HCL [Suspect]
     Indication: DEMENTIA
     Dosage: 10 MG QD PO
     Route: 048
     Dates: start: 20080309, end: 20080315
  6. MEMANTINE HCL [Suspect]
     Indication: DEMENTIA
     Dosage: 15 MG QD PO
     Route: 048
     Dates: start: 20080316, end: 20080322
  7. BRICANYL [Concomitant]
  8. PULMICORT [Concomitant]
  9. IMOVANE (ZOPICLONE) [Concomitant]
  10. MOVICOL [Concomitant]
  11. PARACETAMOL / PARACETAMOL / PARACETAMOL (PARACETAMOL) [Concomitant]

REACTIONS (5)
  - BEDRIDDEN [None]
  - BLOOD ALBUMIN DECREASED [None]
  - GAIT DISTURBANCE [None]
  - MALNUTRITION [None]
  - PULMONARY EMBOLISM [None]
